FAERS Safety Report 8966296 (Version 1)
Quarter: 2012Q4

REPORT INFORMATION
  Report Type: 
  Country: BR (occurrence: BR)
  Receive Date: 20121214
  Receipt Date: 20121214
  Transmission Date: 20130627
  Serious: Yes (Other)
  Sender: FDA-Public Use
  Company Number: BR-BRISTOL-MYERS SQUIBB COMPANY-17185364

PATIENT
  Age: 73 Year
  Sex: Female

DRUGS (12)
  1. APROVEL TABS 300 MG [Suspect]
     Indication: HYPERTENSION
     Dosage: Unkn-Ongoing
     Route: 048
  2. LYRICA [Concomitant]
  3. PANTOPRAZOLE [Concomitant]
  4. DOMPERIDONE [Concomitant]
  5. GINKGO BILOBA [Concomitant]
  6. EZETIMIBE + SIMVASTATIN [Concomitant]
  7. GLUCOSAMINE SULFATE [Concomitant]
  8. CHONDROITIN [Concomitant]
  9. CALCIUM CARBONATE [Concomitant]
  10. ESTREVA [Concomitant]
     Dosage: Gel
  11. ATENOLOL + CHLORTHALIDONE [Concomitant]
  12. HYDROXOCOBALAMIN [Concomitant]

REACTIONS (2)
  - Spinal disorder [Unknown]
  - Pruritus generalised [Not Recovered/Not Resolved]
